FAERS Safety Report 18180286 (Version 2)
Quarter: 2020Q3

REPORT INFORMATION
  Report Type: Spontaneous
  Country: FR (occurrence: FR)
  Receive Date: 20200821
  Receipt Date: 20200901
  Transmission Date: 20201103
  Serious: Yes (Life-Threatening, Hospitalization, Other)
  Sender: FDA-Public Use
  Company Number: FR-BRISTOL-MYERS SQUIBB COMPANY-BMS-2020-067429

PATIENT
  Age: 59 Year
  Sex: Female
  Weight: 74 kg

DRUGS (3)
  1. OPDIVO [Suspect]
     Active Substance: NIVOLUMAB
     Indication: MALIGNANT MELANOMA
     Dosage: 74.8 MILLIGRAM, Q3WK
     Route: 041
     Dates: start: 20200212, end: 20200406
  2. PROPYLEX [Suspect]
     Active Substance: PROPYLTHIOURACIL
     Indication: BASEDOW^S DISEASE
     Dosage: 6 DOSAGE FROM, DAILY
     Route: 048
     Dates: start: 20200402, end: 20200419
  3. YERVOY [Suspect]
     Active Substance: IPILIMUMAB
     Indication: MALIGNANT MELANOMA
     Dosage: 224.4 MILLIGRAM, Q3WK
     Route: 041
     Dates: start: 20200316, end: 20200406

REACTIONS (8)
  - Autoimmune colitis [Recovered/Resolved]
  - Disseminated intravascular coagulation [Recovered/Resolved]
  - Autoimmune nephritis [Recovered/Resolved]
  - Prescribed overdose [Unknown]
  - Autoimmune hepatitis [Recovered/Resolved]
  - Autoimmune pancreatitis [Recovered/Resolved]
  - Autoimmune dermatitis [Recovered/Resolved]
  - Multiple organ dysfunction syndrome [Recovered/Resolved]

NARRATIVE: CASE EVENT DATE: 20200419
